FAERS Safety Report 24873845 (Version 1)
Quarter: 2025Q1

REPORT INFORMATION
  Report Type: Spontaneous
  Country: US (occurrence: US)
  Receive Date: 20250122
  Receipt Date: 20250122
  Transmission Date: 20250408
  Serious: No
  Sender: ROCHE
  Company Number: US-ROCHE-10000185171

PATIENT
  Sex: Female

DRUGS (12)
  1. ACTEMRA ACTPEN [Suspect]
     Active Substance: TOCILIZUMAB
     Indication: Obstructive sleep apnoea syndrome
     Dosage: INJECT 162MG SUBCUTANEOUSLY EVERY OTHER WEEK AS DIRECTED
     Route: 058
     Dates: start: 20150117
  2. DAPSONE [Concomitant]
     Active Substance: DAPSONE
  3. FOLIC ACID [Concomitant]
     Active Substance: FOLIC ACID
  4. METHOCARBAMO [Concomitant]
  5. PREDNISONE [Concomitant]
     Active Substance: PREDNISONE
  6. ALLOPURINOL [Concomitant]
     Active Substance: ALLOPURINOL
  7. ELIQUIS [Concomitant]
     Active Substance: APIXABAN
  8. NORVASC [Concomitant]
     Active Substance: AMLODIPINE BESYLATE
  9. OMEPRAZOLE [Concomitant]
     Active Substance: OMEPRAZOLE
  10. POTASSIUM CH TBC [Concomitant]
  11. TYLENOL [Concomitant]
     Active Substance: ACETAMINOPHEN
  12. MULTI VITAMI [Concomitant]

REACTIONS (2)
  - Pain [Unknown]
  - Off label use [Unknown]
